FAERS Safety Report 16289176 (Version 2)
Quarter: 2019Q3

REPORT INFORMATION
  Report Type: Report from Study
  Country: US (occurrence: US)
  Receive Date: 20190509
  Receipt Date: 20190711
  Transmission Date: 20191004
  Serious: Yes (Hospitalization, Other)
  Sender: FDA-Public Use
  Company Number: US-GILEAD-2019-0406706

PATIENT
  Age: 58 Year
  Sex: Female
  Weight: 112.4 kg

DRUGS (41)
  1. ADEMPAS [Concomitant]
     Active Substance: RIOCIGUAT
  2. GUAIFENESIN. [Concomitant]
     Active Substance: GUAIFENESIN
  3. LACTOBACILLUS ACIDOPHILUS [Concomitant]
     Active Substance: LACTOBACILLUS ACIDOPHILUS
  4. FENTANYL. [Concomitant]
     Active Substance: FENTANYL
  5. BUDESONIDE. [Concomitant]
     Active Substance: BUDESONIDE
  6. PHOSPHORUS [Concomitant]
     Active Substance: PHOSPHORUS
  7. LIDOCAINE. [Concomitant]
     Active Substance: LIDOCAINE
  8. MORPHINE SULFATE. [Concomitant]
     Active Substance: MORPHINE SULFATE
  9. BACTRIM [Concomitant]
     Active Substance: SULFAMETHOXAZOLE\TRIMETHOPRIM
  10. MELATONIN [Concomitant]
     Active Substance: MELATONIN
  11. CHLORHEXIDINE GLUCONATE. [Concomitant]
     Active Substance: CHLORHEXIDINE GLUCONATE
  12. MAGNESIUM [Concomitant]
     Active Substance: MAGNESIUM
  13. LASIX [Concomitant]
     Active Substance: FUROSEMIDE
  14. IPRATROPIUM BROMIDE. [Concomitant]
     Active Substance: IPRATROPIUM BROMIDE
  15. LORAZEPAM. [Concomitant]
     Active Substance: LORAZEPAM
  16. CALCIUM [Concomitant]
     Active Substance: CALCIUM
  17. FAMOTIDINE. [Concomitant]
     Active Substance: FAMOTIDINE
  18. BENZONATATE. [Concomitant]
     Active Substance: BENZONATATE
  19. AMBRISENTAN [Suspect]
     Active Substance: AMBRISENTAN
     Indication: PULMONARY ARTERIAL HYPERTENSION
     Dosage: 10 MG, QD
     Route: 048
     Dates: start: 20101213
  20. PERSANTINE [Concomitant]
     Active Substance: DIPYRIDAMOLE
  21. TRIMETHOPRIM SULFAMETHOXAZOLE [Concomitant]
     Active Substance: SULFAMETHOXAZOLE\TRIMETHOPRIM
  22. ALBUTEROL SULFATE AND IPRATROPIUM BROMIDE [Concomitant]
     Active Substance: ALBUTEROL SULFATE\IPRATROPIUM BROMIDE
  23. POTASSIUM CHLORIDE. [Concomitant]
     Active Substance: POTASSIUM CHLORIDE
  24. NEXIUM [Concomitant]
     Active Substance: ESOMEPRAZOLE MAGNESIUM
  25. POTASSIUM [Concomitant]
     Active Substance: POTASSIUM
  26. MUPIROCIN. [Concomitant]
     Active Substance: MUPIROCIN
  27. ONDANSETRON [Concomitant]
     Active Substance: ONDANSETRON
  28. OXYGEN. [Concomitant]
     Active Substance: OXYGEN
  29. ESTRADIOL. [Concomitant]
     Active Substance: ESTRADIOL
  30. ACETAMINOPHEN. [Concomitant]
     Active Substance: ACETAMINOPHEN
  31. FUROSEMIDE. [Concomitant]
     Active Substance: FUROSEMIDE
  32. OXYCODONE AND ACETAMINOPHEN [Concomitant]
     Active Substance: ACETAMINOPHEN\OXYCODONE HYDROCHLORIDE
  33. RIOCIGUAT. [Concomitant]
     Active Substance: RIOCIGUAT
  34. PANTOPRAZOLE [Concomitant]
     Active Substance: PANTOPRAZOLE
  35. FLUMAZENIL. [Concomitant]
     Active Substance: FLUMAZENIL
  36. NALOXONE [Concomitant]
     Active Substance: NALOXONE
  37. GLUCAGON. [Concomitant]
     Active Substance: GLUCAGON
  38. MINERAL OIL;PETROLATUM [Concomitant]
  39. DOXYCYCLINE. [Concomitant]
     Active Substance: DOXYCYCLINE
  40. CETYLPYRIDINIUM CHLORIDE. [Concomitant]
     Active Substance: CETYLPYRIDINIUM CHLORIDE
  41. DEXTROSE IN WATER [Concomitant]
     Active Substance: DEXTROSE\WATER

REACTIONS (1)
  - Acute respiratory failure [Not Recovered/Not Resolved]

NARRATIVE: CASE EVENT DATE: 20190429
